FAERS Safety Report 5022460-8 (Version None)
Quarter: 2006Q2

REPORT INFORMATION
  Report Type: 
  Country: None (occurrence: None)
  Receive Date: 20060605
  Receipt Date: 20060523
  Transmission Date: 20061013
  Serious: Yes (Hospitalization)
  Sender: FDA-Public Use
  Company Number: 2006012938

PATIENT
  Age: 74 Year
  Sex: Female
  Weight: 90 kg

DRUGS (3)
  1. LYRICA [Suspect]
     Indication: POLYNEUROPATHY
     Dosage: 150 MG (1 IN 1 D), ORAL
     Route: 048
     Dates: start: 20050701, end: 20060101
  2. VOLTAREN [Concomitant]
  3. TRAMADOL HCL [Concomitant]

REACTIONS (2)
  - NEPHRITIS INTERSTITIAL [None]
  - RENAL FAILURE ACUTE [None]
